FAERS Safety Report 7572919-4 (Version None)
Quarter: 2011Q2

REPORT INFORMATION
  Report Type: 
  Country: None (occurrence: None)
  Receive Date: 20110627
  Receipt Date: 20110621
  Transmission Date: 20111010
  Serious: Yes (Death, Other)
  Sender: FDA-Public Use
  Company Number: BR-SANOFI-AVENTIS-2011SA039849

PATIENT

DRUGS (1)
  1. JEVTANA KIT [Suspect]

REACTIONS (2)
  - DEEP VEIN THROMBOSIS [None]
  - DISSEMINATED INTRAVASCULAR COAGULATION [None]
